FAERS Safety Report 9297534 (Version 1)
Quarter: 2013Q2

REPORT INFORMATION
  Report Type: Spontaneous
  Country: JP (occurrence: JP)
  Receive Date: 20130520
  Receipt Date: 20130520
  Transmission Date: 20140414
  Serious: Yes (Other)
  Sender: FDA-Public Use
  Company Number: JP-009507513-1304JPN015277

PATIENT
  Age: 64 Year
  Sex: Female
  Weight: 50 kg

DRUGS (6)
  1. PEGINTRON [Suspect]
     Indication: CHRONIC HEPATITIS C
     Dosage: 1.5UG/KG/WEEK
     Route: 058
     Dates: start: 20130123, end: 20130312
  2. PEGINTRON [Suspect]
     Dosage: 1.0 UG/KG/WEEK
     Route: 058
     Dates: start: 20130319, end: 20130319
  3. REBETOL [Suspect]
     Indication: CHRONIC HEPATITIS C
     Dosage: 400 MG, QD
     Route: 048
     Dates: start: 20130123, end: 20130304
  4. REBETOL [Suspect]
     Dosage: 200 MG, QD
     Route: 048
     Dates: start: 20130305, end: 20130325
  5. TELAVIC [Suspect]
     Indication: CHRONIC HEPATITIS C
     Dosage: 1500 MG, QD
     Route: 048
     Dates: start: 20130123, end: 20130325
  6. JANUVIA TABLETS 25MG [Concomitant]
     Dosage: 25 MG, QD
     Route: 048

REACTIONS (1)
  - Retinal haemorrhage [Recovering/Resolving]
